FAERS Safety Report 4721216-0 (Version None)
Quarter: 2005Q3

REPORT INFORMATION
  Report Type: 
  Country: None (occurrence: None)
  Receive Date: 20050722
  Receipt Date: 20050715
  Transmission Date: 20060218
  Serious: Yes (Life-Threatening)
  Sender: FDA-Public Use
  Company Number: 2005AP03899

PATIENT
  Age: 49 Year
  Sex: Female

DRUGS (2)
  1. ANAPEINE [Suspect]
     Indication: EPIDURAL ANAESTHESIA
     Route: 008
     Dates: start: 20050530, end: 20050530
  2. MUSCULAX [Suspect]

REACTIONS (3)
  - CONTRAST MEDIA REACTION [None]
  - OBSTRUCTIVE AIRWAYS DISORDER [None]
  - PROCEDURAL COMPLICATION [None]
